FAERS Safety Report 9839557 (Version 1)
Quarter: 2014Q1

REPORT INFORMATION
  Report Type: Spontaneous
  Country: IT (occurrence: IT)
  Receive Date: 20140124
  Receipt Date: 20140124
  Transmission Date: 20141002
  Serious: Yes (Death)
  Sender: FDA-Public Use
  Company Number: IT-BEH-2014040323

PATIENT
  Age: 56 Year
  Sex: Female

DRUGS (2)
  1. IVIG [Suspect]
     Indication: POLYMYOSITIS
  2. PREDNISONE [Concomitant]
     Dosage: 0.3MG/KG/DAY

REACTIONS (2)
  - Congestive cardiomyopathy [Fatal]
  - Dyspnoea [Unknown]
